FAERS Safety Report 7051136-0 (Version None)
Quarter: 2010Q4

REPORT INFORMATION
  Report Type: 
  Country: None (occurrence: None)
  Receive Date: 20101019
  Receipt Date: 20101006
  Transmission Date: 20110411
  Serious: Yes (Death, Life-Threatening)
  Sender: FDA-Public Use
  Company Number: JP-JNJFOC-20100906111

PATIENT
  Sex: Female
  Weight: 52 kg

DRUGS (13)
  1. REMICADE [Suspect]
     Indication: RHEUMATOID ARTHRITIS
     Route: 042
  2. REMICADE [Suspect]
     Dosage: 5TH DOSE
     Route: 042
  3. REMICADE [Suspect]
     Dosage: 16TH INFUSION
     Route: 042
  4. REMICADE [Suspect]
     Dosage: 4TH DOSE
     Route: 042
  5. METHOTREXATE [Suspect]
     Indication: RHEUMATOID ARTHRITIS
     Route: 048
  6. PREDNISOLONE [Suspect]
     Indication: RHEUMATOID ARTHRITIS
     Route: 048
  7. MAGLAX [Concomitant]
     Indication: GASTRITIS
     Route: 048
  8. ALOSENN [Concomitant]
     Indication: CONSTIPATION
     Route: 048
  9. LAMISIL [Concomitant]
     Indication: TINEA INFECTION
     Route: 048
  10. VOLTAREN [Concomitant]
     Indication: RHEUMATOID ARTHRITIS
  11. FAMOTIDINE [Concomitant]
     Indication: GASTRITIS
     Route: 048
  12. ALENDRONATE SODIUM HYDRATE [Concomitant]
     Indication: OSTEOPOROSIS
     Route: 048
  13. COLD MEDICINE NOS [Concomitant]

REACTIONS (10)
  - ARTHROPATHY [None]
  - CANDIDA TEST POSITIVE [None]
  - DISSEMINATED INTRAVASCULAR COAGULATION [None]
  - FLAVOBACTERIUM TEST POSITIVE [None]
  - HYPERTHERMIA MALIGNANT [None]
  - INTERSTITIAL LUNG DISEASE [None]
  - PLEURAL EFFUSION [None]
  - RESPIRATORY FAILURE [None]
  - SPUTUM CULTURE POSITIVE [None]
  - STAPHYLOCOCCAL INFECTION [None]
